FAERS Safety Report 20720345 (Version 1)
Quarter: 2022Q2

REPORT INFORMATION
  Report Type: Spontaneous
  Country: US (occurrence: US)
  Receive Date: 20220418
  Receipt Date: 20220418
  Transmission Date: 20220721
  Serious: No
  Sender: FDA-Public Use
  Company Number: US-PFIZER INC-202200531258

PATIENT
  Age: 71 Year
  Sex: Female
  Weight: 104.33 kg

DRUGS (1)
  1. HYDROCORTISONE ACETATE [Suspect]
     Active Substance: HYDROCORTISONE ACETATE
     Indication: Rash
     Dosage: UNK

REACTIONS (1)
  - Drug ineffective [Unknown]
